FAERS Safety Report 18642800 (Version 1)
Quarter: 2020Q4

REPORT INFORMATION
  Report Type: Spontaneous
  Country: US (occurrence: US)
  Receive Date: 20201219
  Receipt Date: 20201219
  Transmission Date: 20210114
  Serious: No
  Sender: FDA-Public Use
  Company Number: None

PATIENT
  Age: 40 Year
  Sex: Female
  Weight: 63.45 kg

DRUGS (4)
  1. IBUPROFEN. [Concomitant]
     Active Substance: IBUPROFEN
  2. CONTRAVE [Suspect]
     Active Substance: BUPROPION HYDROCHLORIDE\NALTREXONE HYDROCHLORIDE
     Indication: OBESITY
     Dosage: ?          QUANTITY:2 TABLET(S);?
     Route: 048
     Dates: start: 20200501
  3. VITAMIN D SUPPLEMENT [Concomitant]
     Active Substance: VITAMIN D NOS
  4. PROBIOTIC [Concomitant]
     Active Substance: PROBIOTICS NOS

REACTIONS (3)
  - Nausea [None]
  - Headache [None]
  - Loss of personal independence in daily activities [None]

NARRATIVE: CASE EVENT DATE: 20201218
